FAERS Safety Report 16086528 (Version 3)
Quarter: 2019Q2

REPORT INFORMATION
  Report Type: Report from Study
  Country: US (occurrence: US)
  Receive Date: 20190318
  Receipt Date: 20190525
  Transmission Date: 20190711
  Serious: Yes (Other)
  Sender: FDA-Public Use
  Company Number: PHEH2019US011268

PATIENT
  Sex: Male

DRUGS (2)
  1. ENTRESTO [Suspect]
     Active Substance: SACUBITRIL\VALSARTAN
     Indication: PRODUCT USED FOR UNKNOWN INDICATION
     Dosage: 1 DF (24 MG SACUBITRIL/ 26 MG VALSARTAN), BID
     Route: 048
  2. ENTRESTO [Suspect]
     Active Substance: SACUBITRIL\VALSARTAN
     Dosage: 1 DF (24 MG SACUBITRIL/ 26 MG VALSARTAN), QD
     Route: 048

REACTIONS (6)
  - Hypotension [Unknown]
  - Fall [Unknown]
  - Inappropriate schedule of product administration [Unknown]
  - Loss of consciousness [Unknown]
  - Sinus disorder [Unknown]
  - Hypoacusis [Unknown]
